FAERS Safety Report 20616796 (Version 1)
Quarter: 2022Q1

REPORT INFORMATION
  Report Type: Spontaneous
  Country: US (occurrence: US)
  Receive Date: 20220321
  Receipt Date: 20220321
  Transmission Date: 20220423
  Serious: No
  Sender: FDA-Public Use
  Company Number: US-PFIZER INC-202200027400

PATIENT
  Age: 79 Year
  Sex: Male

DRUGS (1)
  1. VFEND [Suspect]
     Active Substance: VORICONAZOLE
     Indication: Acute pulmonary histoplasmosis
     Dosage: 200 MG, 2X/DAY
     Route: 048

REACTIONS (2)
  - Peripheral swelling [Unknown]
  - Off label use [Unknown]
